FAERS Safety Report 17194503 (Version 6)
Quarter: 2020Q2

REPORT INFORMATION
  Report Type: Report from Study
  Country: JP (occurrence: JP)
  Receive Date: 20191224
  Receipt Date: 20200520
  Transmission Date: 20200713
  Serious: Yes (Hospitalization, Other)
  Sender: FDA-Public Use
  Company Number: JP-BRISTOL-MYERS SQUIBB COMPANY-BMS-2019-114002

PATIENT
  Age: 52 Year
  Sex: Male
  Weight: 72 kg

DRUGS (3)
  1. IPILIMUMAB [Suspect]
     Active Substance: IPILIMUMAB
     Indication: METASTATIC RENAL CELL CARCINOMA
     Dosage: 1 MILLIGRAM/KILOGRAM, Q3WK
     Route: 041
     Dates: start: 20190815, end: 20191017
  2. NIVOLUMAB [Suspect]
     Active Substance: NIVOLUMAB
     Indication: METASTATIC RENAL CELL CARCINOMA
     Dosage: 240 MILLIGRAM, Q3WK
     Route: 041
     Dates: start: 20190815, end: 20191017
  3. NIVOLUMAB [Suspect]
     Active Substance: NIVOLUMAB
     Indication: PRODUCT USED FOR UNKNOWN INDICATION
     Dosage: 240 MILLIGRAM
     Route: 041
     Dates: start: 20200220, end: 20200401

REACTIONS (5)
  - Pneumonia [Recovering/Resolving]
  - Erythema multiforme [Recovering/Resolving]
  - Myocarditis [Unknown]
  - Coronary artery stenosis [Unknown]
  - Adrenal insufficiency [Recovering/Resolving]

NARRATIVE: CASE EVENT DATE: 20191101
